FAERS Safety Report 12470239 (Version 2)
Quarter: 2016Q2

REPORT INFORMATION
  Report Type: Report from Study
  Country: IT (occurrence: IT)
  Receive Date: 20160616
  Receipt Date: 20160623
  Transmission Date: 20160815
  Serious: Yes (Other)
  Sender: FDA-Public Use
  Company Number: IT-ROCHE-1746765

PATIENT
  Age: 73 Year
  Sex: Male

DRUGS (10)
  1. CARDIAZOL-PARACODINA [Concomitant]
     Dosage: 20 MG/ML+100 MG/ML-BOTTLE WITH DROPPER -10ML
     Route: 065
  2. ESBRIET [Suspect]
     Active Substance: PIRFENIDONE
     Indication: IDIOPATHIC PULMONARY FIBROSIS
     Route: 048
     Dates: start: 20140430
  3. RAMIPRIL. [Concomitant]
     Active Substance: RAMIPRIL
     Route: 065
  4. CARDIRENE [Concomitant]
     Active Substance: ASPIRIN DL-LYSINE
     Dosage: 160 MG POWDER FOR ORAL SOLUTION^ 30 SACHETS
     Route: 048
  5. ATENOLOL. [Concomitant]
     Active Substance: ATENOLOL
     Route: 065
  6. DEDIOL [Concomitant]
     Active Substance: ALFACALCIDOL
     Dosage: 2 MCG/ML ORAL DROPS SOLUTION 1 BOTTLE -10ML
     Route: 048
  7. PROVISACOR [Concomitant]
     Active Substance: ROSUVASTATIN
     Route: 065
  8. SALMETEROL [Concomitant]
     Active Substance: SALMETEROL
  9. LANSOPRAZOLE. [Concomitant]
     Active Substance: LANSOPRAZOLE
     Route: 065
  10. SERETIDE [Concomitant]
     Active Substance: FLUTICASONE PROPIONATE\SALMETEROL XINAFOATE

REACTIONS (15)
  - Hot flush [Unknown]
  - Nausea [Recovering/Resolving]
  - Nausea [Unknown]
  - Dizziness [Unknown]
  - Decreased appetite [Unknown]
  - Breath odour [Recovering/Resolving]
  - Catarrh [Unknown]
  - Dysgeusia [Recovering/Resolving]
  - Hypotension [Unknown]
  - Pruritus [Unknown]
  - Eructation [Unknown]
  - Vertigo [Unknown]
  - Salivary hypersecretion [Recovering/Resolving]
  - Fatigue [Unknown]
  - Flatulence [Unknown]

NARRATIVE: CASE EVENT DATE: 20140613
